FAERS Safety Report 6460835-0 (Version None)
Quarter: 2009Q4

REPORT INFORMATION
  Report Type: 
  Country: None (occurrence: None)
  Receive Date: 20091105
  Receipt Date: 20091105
  Transmission Date: 20100525
  Serious: Yes (Life-Threatening, Hospitalization, Other)
  Sender: FDA-Public Use
  Company Number: 20091019CINRY1203

PATIENT
  Age: 54 Year
  Sex: Male
  Weight: 158.759 kg

DRUGS (2)
  1. CINRYZE [Suspect]
     Indication: HEREDITARY ANGIOEDEMA
     Dosage: (1000 UNIT,1 IN 1 WK),INTRAVENOUS
     Route: 042
     Dates: start: 20090601
  2. CINRYZE [Suspect]
     Indication: PROPHYLAXIS
     Dosage: (1000 UNIT,1 IN 1 WK),INTRAVENOUS
     Route: 042
     Dates: start: 20090601

REACTIONS (5)
  - EPISTAXIS [None]
  - HAEMOGLOBIN DECREASED [None]
  - INFUSION RELATED REACTION [None]
  - LOCAL SWELLING [None]
  - SELF-MEDICATION [None]
